FAERS Safety Report 5529725-1 (Version None)
Quarter: 2007Q4

REPORT INFORMATION
  Report Type: 
  Country: None (occurrence: None)
  Receive Date: 20071129
  Receipt Date: 20070109
  Transmission Date: 20080405
  Serious: No
  Sender: FDA-Public Use
  Company Number: US-ABBOTT-07P-163-0356214-00

PATIENT
  Sex: Female
  Weight: 83.536 kg

DRUGS (6)
  1. MERIDIA [Suspect]
     Route: 048
     Dates: start: 20061216, end: 20070106
  2. FLUOXETINE HYDROCHLORIDE [Concomitant]
     Indication: DEPRESSION
     Route: 048
     Dates: start: 20050101
  3. HYDROXYCHLOROQUINE PHOSPHATE [Concomitant]
     Indication: RHEUMATOID ARTHRITIS
     Route: 048
     Dates: start: 20040101
  4. HYDROCHLOROTHIAZIDE [Concomitant]
     Indication: HYPERTENSION
     Route: 048
     Dates: start: 20061001
  5. ATODOLIC [Concomitant]
     Indication: HYPERTENSION
     Route: 048
     Dates: start: 20050101
  6. LOVASTATIN [Concomitant]
     Indication: BLOOD CHOLESTEROL
     Route: 048
     Dates: start: 20040101

REACTIONS (2)
  - DRUG INEFFECTIVE [None]
  - INCREASED APPETITE [None]
